FAERS Safety Report 5964183-4 (Version None)
Quarter: 2008Q4

REPORT INFORMATION
  Report Type: 
  Country: None (occurrence: None)
  Receive Date: 20081124
  Receipt Date: 20081124
  Transmission Date: 20090506
  Serious: Yes (Hospitalization)
  Sender: FDA-Public Use
  Company Number: DE-ABBOTT-08P-062-0488642-00

PATIENT
  Sex: Female

DRUGS (2)
  1. HUMIRA [Suspect]
     Indication: RHEUMATOID ARTHRITIS
     Route: 058
     Dates: start: 20060101, end: 20080101
  2. HUMIRA [Suspect]
     Dates: start: 20080801, end: 20081001

REACTIONS (3)
  - GASTROINTESTINAL TRACT ADENOMA [None]
  - OVARIAN ADENOMA [None]
  - PAROVARIAN CYST [None]
